FAERS Safety Report 9325344 (Version 1)
Quarter: 2013Q2

REPORT INFORMATION
  Report Type: Spontaneous
  Country: US (occurrence: US)
  Receive Date: 20130604
  Receipt Date: 20130604
  Transmission Date: 20140414
  Serious: No
  Sender: FDA-Public Use
  Company Number: US-BIOGENIDEC-2013BI049258

PATIENT
  Age: 33 Year
  Sex: Female

DRUGS (3)
  1. TYSABRI [Suspect]
     Indication: MULTIPLE SCLEROSIS
     Route: 042
     Dates: start: 20100104, end: 20100607
  2. TYSABRI [Suspect]
     Indication: MULTIPLE SCLEROSIS
     Route: 042
     Dates: start: 20100104, end: 20100816
  3. TYSABRI [Suspect]
     Indication: MULTIPLE SCLEROSIS
     Route: 042
     Dates: start: 20111107

REACTIONS (5)
  - Nuclear magnetic resonance imaging abnormal [Unknown]
  - Hypoaesthesia [Recovered/Resolved]
  - Gait disturbance [Unknown]
  - Fall [Recovered/Resolved]
  - Multiple sclerosis relapse [Recovered/Resolved]
